FAERS Safety Report 5278147-X (Version None)
Quarter: 2007Q1

REPORT INFORMATION
  Report Type: 
  Country: None (occurrence: None)
  Receive Date: 20061213
  Receipt Date: 20060410
  Transmission Date: 20070707
  Serious: Yes (Disabling)
  Sender: FDA-Public Use
  Company Number: 2006UW04933

PATIENT
  Age: 16 Year
  Sex: Male
  Weight: 66.0437 kg

DRUGS (2)
  1. SEROQUEL [Suspect]
     Indication: PSYCHOTIC DISORDER
     Dosage: 900 MG HS PO
     Route: 048
     Dates: start: 20050101
  2. SYNTHROID [Concomitant]

REACTIONS (1)
  - HYPOTHYROIDISM [None]
